FAERS Safety Report 19416174 (Version 1)
Quarter: 2021Q2

REPORT INFORMATION
  Report Type: Spontaneous
  Country: US (occurrence: US)
  Receive Date: 20210615
  Receipt Date: 20210615
  Transmission Date: 20210717
  Serious: Yes (Other)
  Sender: FDA-Public Use
  Company Number: US-ALLERGAN-2105555US

PATIENT
  Age: 44 Year
  Sex: Female

DRUGS (2)
  1. KYBELLA [Suspect]
     Active Substance: DEOXYCHOLIC ACID
     Indication: FAT TISSUE INCREASED
     Dosage: UNK UNK, SINGLE
     Route: 058
     Dates: start: 20210128, end: 20210128
  2. KYBELLA [Suspect]
     Active Substance: DEOXYCHOLIC ACID
     Dosage: UNK UNK, SINGLE
     Route: 058
     Dates: start: 20210128, end: 20210128

REACTIONS (13)
  - Vasospasm [Recovering/Resolving]
  - Injection site erythema [Recovering/Resolving]
  - Injection site necrosis [Recovering/Resolving]
  - Injection site ulcer [Recovering/Resolving]
  - Injection site erosion [Recovering/Resolving]
  - Injection site swelling [Recovering/Resolving]
  - Condition aggravated [Recovering/Resolving]
  - Injection site scab [Recovering/Resolving]
  - Pallor [Recovering/Resolving]
  - Incorrect route of product administration [Unknown]
  - Injection site bruising [Recovering/Resolving]
  - Injection site induration [Recovering/Resolving]
  - Injection site pain [Recovering/Resolving]

NARRATIVE: CASE EVENT DATE: 2021
